FAERS Safety Report 10006429 (Version 1)
Quarter: 2014Q1

REPORT INFORMATION
  Report Type: Report from Study
  Country: US (occurrence: US)
  Receive Date: 20140313
  Receipt Date: 20140313
  Transmission Date: 20141002
  Serious: Yes (Other)
  Sender: FDA-Public Use
  Company Number: US-VERTEX PHARMACEUTICALS INC-2014-001143

PATIENT
  Age: 19 Year
  Sex: Female
  Weight: 57 kg

DRUGS (16)
  1. VX-809 FDC [Suspect]
     Dosage: 600 MG, QD
     Route: 048
     Dates: start: 20140131, end: 20140304
  2. VX-770 FDC [Suspect]
     Indication: CYSTIC FIBROSIS
     Dosage: 250 MG, QAM
     Route: 048
     Dates: start: 20140131, end: 20140304
  3. VX-770 [Suspect]
     Indication: CYSTIC FIBROSIS
     Dosage: 250 MG, QPM
     Route: 048
     Dates: start: 20140131, end: 20140304
  4. ZITHROMAX [Concomitant]
     Dosage: 500 MG, M/W/F
     Route: 048
  5. ZENPEP 20 [Concomitant]
     Dosage: 5-6 CAPS TID
     Route: 048
  6. VITAMIN D3 [Concomitant]
     Dosage: 1000 IU, UNK
     Route: 048
  7. VENTOLIN [Concomitant]
     Dosage: MDI 2 PUFFS BID
     Route: 055
  8. ZOLOFT [Concomitant]
     Dosage: 1 TAB, QD
     Route: 048
  9. PULMOZYME [Concomitant]
     Dosage: 2.5 ML, QD
     Route: 055
  10. NOVOLOG [Concomitant]
     Dosage: 1 UNIT
     Route: 042
  11. NEXIUM [Concomitant]
     Dosage: 40 MG, QD
     Route: 048
  12. SOURCECF MULTIVITAMIN AND MINERALS [Concomitant]
     Dosage: 3 TABS, QD
     Route: 048
  13. HYPERTONIC SALINE SOLUTION 7% [Concomitant]
     Dosage: 4 ML, BID
     Route: 055
  14. FLONASE [Concomitant]
     Dosage: 1 SPRAY BID
     Route: 045
  15. ALLEGRA [Concomitant]
     Dosage: 60 MG, QD
     Route: 048
  16. ADVAIR HFA [Concomitant]
     Dosage: 2 PUFFS BID
     Route: 055

REACTIONS (1)
  - Forced expiratory volume decreased [Not Recovered/Not Resolved]
